FAERS Safety Report 7777334-6 (Version None)
Quarter: 2011Q3

REPORT INFORMATION
  Report Type: 
  Country: None (occurrence: None)
  Receive Date: 20110926
  Receipt Date: 20110922
  Transmission Date: 20111222
  Serious: Yes (Hospitalization)
  Sender: FDA-Public Use
  Company Number: PHHO2009PL02372

PATIENT
  Sex: Male
  Weight: 97 kg

DRUGS (5)
  1. BISOPROLOL FUMARATE [Concomitant]
     Indication: HYPERTENSION
     Dosage: UNK
  2. TASIGNA [Suspect]
     Dosage: NO TREATMENT RECEIVED
     Dates: start: 20100830, end: 20100924
  3. TASIGNA [Suspect]
     Dosage: UNK
     Route: 048
     Dates: start: 20100925
  4. TASIGNA [Suspect]
     Indication: CHRONIC MYELOID LEUKAEMIA
     Dosage: 800 MG, DAILY
     Route: 048
     Dates: start: 20080731, end: 20080829
  5. DIAPREL [Concomitant]

REACTIONS (6)
  - TROPONIN I INCREASED [None]
  - MYOCARDIAL INFARCTION [None]
  - CHEST PAIN [None]
  - BLOOD CREATINE PHOSPHOKINASE INCREASED [None]
  - ANGINA PECTORIS [None]
  - BLOOD CREATINE PHOSPHOKINASE MB INCREASED [None]
